FAERS Safety Report 7517938-9 (Version None)
Quarter: 2011Q2

REPORT INFORMATION
  Report Type: 
  Country: None (occurrence: None)
  Receive Date: 20110527
  Receipt Date: 20110527
  Transmission Date: 20111010
  Serious: Yes (Hospitalization)
  Sender: FDA-Public Use
  Company Number: None

PATIENT
  Age: 73 Year
  Sex: Male

DRUGS (1)
  1. METOPROLOL TARTRATE [Suspect]
     Indication: HYPERTENSION
     Dosage: 10 MG ONCE IV
     Route: 042
     Dates: start: 20110509, end: 20110509

REACTIONS (2)
  - CARDIAC ARREST [None]
  - BRADYCARDIA [None]
